FAERS Safety Report 12378594 (Version 1)
Quarter: 2016Q2

REPORT INFORMATION
  Report Type: Spontaneous
  Country: GB (occurrence: GB)
  Receive Date: 20160517
  Receipt Date: 20160517
  Transmission Date: 20160815
  Serious: Yes (Other)
  Sender: FDA-Public Use
  Company Number: GB-TEVA-659161ACC

PATIENT
  Age: 47 Year
  Sex: Male

DRUGS (7)
  1. CARBAMAZEPINE. [Suspect]
     Active Substance: CARBAMAZEPINE
     Indication: EPILEPSY
     Dosage: 1200 MILLIGRAM DAILY;
     Route: 048
  2. ROSUVASTATIN. [Concomitant]
     Active Substance: ROSUVASTATIN
     Indication: HYPERCHOLESTEROLAEMIA
     Dosage: 40 MILLIGRAM DAILY; 40 MG; AT NIGHT
     Route: 048
  3. CLOBAZAM [Interacting]
     Active Substance: CLOBAZAM
     Indication: EPILEPSY
     Dosage: RECENTLY INCREASED FROM 10MG OD
     Route: 048
     Dates: start: 20151030
  4. LEVETIRACETAM. [Suspect]
     Active Substance: LEVETIRACETAM
     Indication: EPILEPSY
     Dosage: 3000 MILLIGRAM DAILY;
     Route: 048
  5. COLESEVELAM [Concomitant]
     Active Substance: COLESEVELAM
     Indication: HYPERCHOLESTEROLAEMIA
     Dosage: 3750 MILLIGRAM DAILY; 3750 MG; 3 TABLETS
     Route: 048
  6. CLOBAZAM [Interacting]
     Active Substance: CLOBAZAM
     Dosage: 10 MILLIGRAM DAILY;
  7. ASPIRIN. [Concomitant]
     Active Substance: ASPIRIN
     Dosage: 75 MILLIGRAM DAILY;
     Route: 048

REACTIONS (2)
  - Skin discolouration [Not Recovered/Not Resolved]
  - Drug interaction [Unknown]
